FAERS Safety Report 9307205 (Version 1)
Quarter: 2013Q2

REPORT INFORMATION
  Report Type: Report from Study
  Country: JP (occurrence: JP)
  Receive Date: 20130524
  Receipt Date: 20130524
  Transmission Date: 20140414
  Serious: Yes (Other)
  Sender: FDA-Public Use
  Company Number: JP-009507513-1305JPN012738

PATIENT
  Age: 51 Year
  Sex: Male

DRUGS (9)
  1. PEGINTRON [Suspect]
     Indication: CHRONIC HEPATITIS C
     Dosage: DAILY DOSE UNKNOWN
     Route: 058
     Dates: start: 20120614
  2. PEGINTRON [Suspect]
     Dosage: 1.5 MICROGRAM PER KILOGRAM, QW
     Route: 058
     Dates: start: 20120903, end: 20121119
  3. REBETOL [Suspect]
     Indication: CHRONIC HEPATITIS C
     Dosage: DAILY DOSE UNKNOWN
     Route: 048
     Dates: start: 20120614
  4. REBETOL [Suspect]
     Dosage: 1000 MG,QD
     Route: 048
     Dates: start: 20120903, end: 20120924
  5. REBETOL [Suspect]
     Dosage: 400 MG, QD
     Route: 048
     Dates: start: 20120925, end: 20121009
  6. REBETOL [Suspect]
     Dosage: 1000 MG,QD
     Route: 048
     Dates: start: 20121010, end: 20121126
  7. TELAVIC [Suspect]
     Indication: CHRONIC HEPATITIS C
     Dosage: 2250 MG,QD
     Route: 048
     Dates: start: 20120903, end: 20120924
  8. TELAVIC [Suspect]
     Dosage: 1500 MG,QD
     Route: 048
     Dates: start: 20120925, end: 20121009
  9. TELAVIC [Suspect]
     Dosage: 2250 MG,QD
     Route: 048
     Dates: start: 20121010, end: 20121126

REACTIONS (1)
  - Skin disorder [Unknown]
